FAERS Safety Report 9674800 (Version 1)
Quarter: 2013Q4

REPORT INFORMATION
  Report Type: Spontaneous
  Country: US (occurrence: None)
  Receive Date: 20131106
  Receipt Date: 20131106
  Transmission Date: 20140711
  Serious: Yes (Life-Threatening, Hospitalization)
  Sender: FDA-Public Use
  Company Number: None

PATIENT
  Age: 43 Year
  Sex: Female
  Weight: 68.04 kg

DRUGS (1)
  1. HYALURONONIDASE [Suspect]
     Indication: SCAR
     Dosage: LESS THAN 10 ML, SUBCUTANEOUS
     Route: 058
     Dates: start: 20130825, end: 20130908

REACTIONS (6)
  - Flank pain [None]
  - Dyspnoea [None]
  - Pharyngeal oedema [None]
  - Vomiting [None]
  - Loss of consciousness [None]
  - Sepsis [None]
